FAERS Safety Report 15367932 (Version 1)
Quarter: 2018Q3

REPORT INFORMATION
  Report Type: Spontaneous
  Country: US (occurrence: US)
  Receive Date: 20180910
  Receipt Date: 20180910
  Transmission Date: 20181010
  Serious: Yes (Hospitalization, Other)
  Sender: FDA-Public Use
  Company Number: US-GLAXOSMITHKLINE-US2018160821

PATIENT
  Age: 76 Year
  Sex: Male

DRUGS (1)
  1. ADVAIR DISKUS [Suspect]
     Active Substance: FLUTICASONE PROPIONATE\SALMETEROL XINAFOATE
     Dosage: 1 PUFF(S), BID
     Route: 055

REACTIONS (6)
  - Spinal cord neoplasm [Unknown]
  - Visual acuity reduced [Unknown]
  - Vision blurred [Unknown]
  - Surgery [Unknown]
  - Loss of control of legs [Unknown]
  - Nerve compression [Unknown]

NARRATIVE: CASE EVENT DATE: 201808
